FAERS Safety Report 5238374-4 (Version None)
Quarter: 2007Q1

REPORT INFORMATION
  Report Type: 
  Country: None (occurrence: None)
  Receive Date: 20070215
  Receipt Date: 20070206
  Transmission Date: 20070707
  Serious: Yes (Life-Threatening)
  Sender: FDA-Public Use
  Company Number: DE-ROCHE-466496

PATIENT
  Age: 65 Year
  Sex: Male
  Weight: 72 kg

DRUGS (3)
  1. PEGASYS [Suspect]
     Route: 058
     Dates: start: 20060320
  2. COPEGUS [Suspect]
     Route: 048
     Dates: start: 20060320
  3. VITAMIN B-12 [Concomitant]
     Indication: GASTRECTOMY
     Dosage: DOSAGE: MONTHLY PRN.
     Route: 058
     Dates: start: 19990615

REACTIONS (3)
  - METASTASES TO BONE [None]
  - PROSTATE CANCER [None]
  - PROSTATIC SPECIFIC ANTIGEN INCREASED [None]
